FAERS Safety Report 8918519 (Version 1)
Quarter: 2012Q4

REPORT INFORMATION
  Report Type: 
  Country: US (occurrence: US)
  Receive Date: 20121120
  Receipt Date: 20121120
  Transmission Date: 20130627
  Serious: Yes (Other)
  Sender: FDA-Public Use
  Company Number: US-ELI_LILLY_AND_COMPANY-US201211003233

PATIENT
  Age: 60 Year
  Sex: Female
  Weight: 81.63 kg

DRUGS (1)
  1. BYDUREON [Suspect]
     Indication: INSULIN RESISTANCE
     Dosage: 2 mg, weekly (1/W)
     Route: 058
     Dates: start: 20121028, end: 20121104

REACTIONS (3)
  - Oedema peripheral [Not Recovered/Not Resolved]
  - Angioedema [Not Recovered/Not Resolved]
  - Off label use [Recovered/Resolved]
